FAERS Safety Report 18992091 (Version 1)
Quarter: 2021Q1

REPORT INFORMATION
  Report Type: Spontaneous
  Country: US (occurrence: US)
  Receive Date: 20210310
  Receipt Date: 20210310
  Transmission Date: 20210420
  Serious: Yes (Hospitalization)
  Sender: FDA-Public Use
  Company Number: None

PATIENT
  Age: 42 Year
  Sex: Male
  Weight: 82 kg

DRUGS (2)
  1. METOPROLOL (METOPROLOL TARTRATE 100MG TAB) [Suspect]
     Active Substance: METOPROLOL TARTRATE
     Indication: HYPERTENSION
     Route: 048
     Dates: start: 20210120, end: 20210121
  2. LISINOPRIL (LISINOPRIL 10MG TAB) [Suspect]
     Active Substance: LISINOPRIL
     Route: 048
     Dates: start: 20171023, end: 20210121

REACTIONS (2)
  - Obstructive airways disorder [None]
  - Anaphylactic reaction [None]

NARRATIVE: CASE EVENT DATE: 20210121
